FAERS Safety Report 8691365 (Version 3)
Quarter: 2012Q4

REPORT INFORMATION
  Report Type: 
  Country: US (occurrence: US)
  Receive Date: 20120730
  Receipt Date: 20121029
  Transmission Date: 20130627
  Serious: Yes (Death, Life-Threatening)
  Sender: FDA-Public Use
  Company Number: US-ASTELLAS-2012US006471

PATIENT
  Age: 68 Year
  Sex: Female

DRUGS (5)
  1. ADENOSCAN [Suspect]
     Indication: SCAN MYOCARDIAL PERFUSION
     Dosage: 14.37 ml, Total Dose
     Route: 040
     Dates: start: 20120703, end: 20120703
  2. ALBUTEROL                          /00139501/ [Concomitant]
     Indication: PRODUCT USED FOR UNKNOWN INDICATION
     Dosage: UNK
     Route: 055
  3. IBUPROFEN [Concomitant]
     Indication: PRODUCT USED FOR UNKNOWN INDICATION
     Dosage: UNK
     Route: 065
  4. SPIRIVA [Concomitant]
     Indication: PRODUCT USED FOR UNKNOWN INDICATION
     Dosage: UNK
     Route: 055
  5. XANAX [Concomitant]
     Indication: PRODUCT USED FOR UNKNOWN INDICATION
     Dosage: prn prior to nuclear stress test
     Route: 065

REACTIONS (8)
  - Bronchospasm [Fatal]
  - Cardiac arrest [Unknown]
  - General physical health deterioration [None]
  - Unresponsive to stimuli [None]
  - Pulse absent [None]
  - Pulseless electrical activity [None]
  - Ventricular tachycardia [None]
  - Sinus bradycardia [None]
